FAERS Safety Report 5413636-6 (Version None)
Quarter: 2007Q3

REPORT INFORMATION
  Report Type: 
  Country: None (occurrence: None)
  Receive Date: 20070814
  Receipt Date: 20070611
  Transmission Date: 20080115
  Serious: No
  Sender: FDA-Public Use
  Company Number: US-BRISTOL-MYERS SQUIBB COMPANY-13810338

PATIENT
  Sex: Female
  Weight: 61 kg

DRUGS (4)
  1. GLUCOVANCE [Suspect]
     Indication: DIABETES MELLITUS
     Route: 048
     Dates: start: 20040201
  2. LISINOPRIL [Concomitant]
  3. ASPIRIN [Concomitant]
  4. CENTRUM [Concomitant]

REACTIONS (2)
  - BURNING SENSATION [None]
  - HYPOAESTHESIA [None]
